FAERS Safety Report 5686103-2 (Version None)
Quarter: 2008Q1

REPORT INFORMATION
  Report Type: 
  Country: None (occurrence: None)
  Receive Date: 20080328
  Receipt Date: 20070703
  Transmission Date: 20080703
  Serious: No
  Sender: FDA-Public Use
  Company Number: US-BAYER-US-2007-024894

PATIENT
  Age: 32 Year
  Sex: Female
  Weight: 110 kg

DRUGS (3)
  1. MIRENA [Suspect]
     Indication: CONTRACEPTION
     Route: 015
     Dates: start: 20070201
  2. ZOLOFT [Concomitant]
     Indication: DEPRESSION
     Dosage: UNIT DOSE: 50 MG
     Route: 048
     Dates: start: 20050101
  3. NEXIUM /UNK/ [Concomitant]

REACTIONS (2)
  - BACK PAIN [None]
  - VAGINAL HAEMORRHAGE [None]
